FAERS Safety Report 25871130 (Version 1)
Quarter: 2025Q3

REPORT INFORMATION
  Report Type: Spontaneous
  Country: US (occurrence: None)
  Receive Date: 20250930
  Receipt Date: 20250930
  Transmission Date: 20251020
  Serious: Yes (Other)
  Sender: FDA-CTU
  Company Number: None

PATIENT
  Age: 70 Year
  Sex: Female

DRUGS (10)
  1. RINVOQ [Suspect]
     Active Substance: UPADACITINIB
     Indication: Colitis ulcerative
     Dosage: 30 MG DAILY ORAL
     Route: 048
     Dates: start: 20240412, end: 20250930
  2. TRAMADOL [Concomitant]
     Active Substance: TRAMADOL
  3. Red Mineral Algae Calcium [Concomitant]
  4. UBRELVY [Concomitant]
     Active Substance: UBROGEPANT
  5. Fish Oil Omega-3 [Concomitant]
  6. MAGNESIUM [Concomitant]
     Active Substance: MAGNESIUM
  7. Women^s Probiotic [Concomitant]
  8. Tumeric with Black Pepper [Concomitant]
  9. MENAQUINONE 6 [Concomitant]
     Active Substance: MENAQUINONE 6
  10. VITAMIN D3 [Concomitant]
     Active Substance: CHOLECALCIFEROL

REACTIONS (6)
  - Leukopenia [None]
  - Iron deficiency anaemia [None]
  - Nausea [None]
  - Wound infection [None]
  - Tremor [None]
  - Nasopharyngitis [None]

NARRATIVE: CASE EVENT DATE: 20250930
